FAERS Safety Report 6398309-8 (Version None)
Quarter: 2009Q4

REPORT INFORMATION
  Report Type: 
  Country: None (occurrence: None)
  Receive Date: 20091013
  Receipt Date: 20091006
  Transmission Date: 20100525
  Serious: Yes (Disabling)
  Sender: FDA-Public Use
  Company Number: DE-WYE-G04560309

PATIENT
  Age: 46 Year
  Sex: Female

DRUGS (1)
  1. VENLAFAXINE HCL [Suspect]
     Dosage: 75MG/D WITH TEMPORARY INTERMISSIONS
     Route: 048

REACTIONS (6)
  - ACTIVITIES OF DAILY LIVING IMPAIRED [None]
  - MOTOR DYSFUNCTION [None]
  - MUSCULOSKELETAL STIFFNESS [None]
  - NECK PAIN [None]
  - PARAESTHESIA [None]
  - TARDIVE DYSKINESIA [None]
